FAERS Safety Report 7720696-6 (Version None)
Quarter: 2011Q3

REPORT INFORMATION
  Report Type: 
  Country: None (occurrence: None)
  Receive Date: 20110831
  Receipt Date: 20110823
  Transmission Date: 20111222
  Serious: Yes (Other)
  Sender: FDA-Public Use
  Company Number: PHEH2006US11225

PATIENT
  Sex: Male
  Weight: 83.447 kg

DRUGS (15)
  1. RESTORIL [Concomitant]
  2. AVANDIA [Concomitant]
  3. INSULIN [Concomitant]
  4. DIOVAN [Concomitant]
  5. NORVASC [Concomitant]
  6. METFORMIN [Concomitant]
  7. AREDIA [Suspect]
  8. PLAVIX [Concomitant]
  9. ZOCOR [Concomitant]
  10. ASPIRIN [Concomitant]
  11. ZOMETA [Suspect]
     Dosage: UNK
     Dates: end: 20051020
  12. ACIPHEX [Concomitant]
  13. ASPIRIN [Concomitant]
  14. FELODIPINE [Concomitant]
  15. VASOTEC [Concomitant]

REACTIONS (33)
  - LEFT VENTRICULAR HYPERTROPHY [None]
  - AORTIC VALVE INCOMPETENCE [None]
  - OSTEONECROSIS OF JAW [None]
  - ANXIETY [None]
  - PLEURAL FIBROSIS [None]
  - CORONARY ARTERY DISEASE [None]
  - PULMONARY VALVE INCOMPETENCE [None]
  - PAIN [None]
  - ANGINA PECTORIS [None]
  - BONE LOSS [None]
  - ARTERIOSCLEROSIS [None]
  - MITRAL VALVE INCOMPETENCE [None]
  - MYOCARDIAL INFARCTION [None]
  - DECREASED INTEREST [None]
  - CHRONIC OBSTRUCTIVE PULMONARY DISEASE [None]
  - GENERAL PHYSICAL HEALTH DETERIORATION [None]
  - BRONCHITIS CHRONIC [None]
  - CARDIAC MURMUR [None]
  - EXPOSED BONE IN JAW [None]
  - EMPHYSEMA [None]
  - GINGIVAL INFECTION [None]
  - HAEMORRHAGE [None]
  - TYPE 1 DIABETES MELLITUS [None]
  - HYPERLIPIDAEMIA [None]
  - HYPERTENSION [None]
  - DIZZINESS [None]
  - DYSPNOEA EXERTIONAL [None]
  - TRICUSPID VALVE INCOMPETENCE [None]
  - IMPAIRED HEALING [None]
  - ISCHAEMIA [None]
  - SYNCOPE [None]
  - MULTIPLE MYELOMA [None]
  - GASTROOESOPHAGEAL REFLUX DISEASE [None]
